FAERS Safety Report 8213124-8 (Version None)
Quarter: 2012Q1

REPORT INFORMATION
  Report Type: 
  Country: None (occurrence: None)
  Receive Date: 20120315
  Receipt Date: 20120308
  Transmission Date: 20120608
  Serious: Yes (Hospitalization, Other)
  Sender: FDA-Public Use
  Company Number: US-ABBOTT-12P-163-0912959-00

PATIENT
  Sex: Male
  Weight: 50.4 kg

DRUGS (9)
  1. LEVSIN [Concomitant]
     Indication: PRODUCT USED FOR UNKNOWN INDICATION
  2. VITAMIN B COMPLEX CAP [Concomitant]
     Indication: PRODUCT USED FOR UNKNOWN INDICATION
  3. NEXIUM [Concomitant]
     Indication: PRODUCT USED FOR UNKNOWN INDICATION
  4. VITAMIN D [Concomitant]
     Indication: PRODUCT USED FOR UNKNOWN INDICATION
  5. BENEFIBER [Concomitant]
     Indication: PRODUCT USED FOR UNKNOWN INDICATION
  6. REMICADE [Suspect]
     Indication: INFLAMMATORY BOWEL DISEASE
     Route: 042
     Dates: start: 20051008, end: 20100413
  7. AMITRIPTYLINE HCL [Concomitant]
     Indication: PRODUCT USED FOR UNKNOWN INDICATION
  8. HUMIRA [Suspect]
     Indication: INFLAMMATORY BOWEL DISEASE
     Dates: start: 20111202
  9. HYOSCYAMINE [Concomitant]
     Indication: PRODUCT USED FOR UNKNOWN INDICATION

REACTIONS (8)
  - HEADACHE [None]
  - PHOTOPHOBIA [None]
  - MUSCULOSKELETAL STIFFNESS [None]
  - RHINOVIRUS INFECTION [None]
  - HOSPITALISATION [None]
  - NUTRITIONAL SUPPORT [None]
  - RETROPERITONEAL ABSCESS [None]
  - ENTEROVIRUS INFECTION [None]
